FAERS Safety Report 5092368-0 (Version None)
Quarter: 2006Q3

REPORT INFORMATION
  Report Type: 
  Country: None (occurrence: None)
  Receive Date: 20060825
  Receipt Date: 20060807
  Transmission Date: 20061208
  Serious: Yes (Hospitalization)
  Sender: FDA-Public Use
  Company Number: US200607001161

PATIENT
  Sex: Male
  Weight: 181 kg

DRUGS (1)
  1. ZYPREXA [Suspect]
     Dates: start: 19970101, end: 20041201

REACTIONS (2)
  - DIABETES MELLITUS [None]
  - RENAL FAILURE ACUTE [None]
